FAERS Safety Report 6197729-4 (Version None)
Quarter: 2009Q2

REPORT INFORMATION
  Report Type: 
  Country: None (occurrence: None)
  Receive Date: 20090521
  Receipt Date: 20090512
  Transmission Date: 20091009
  Serious: Yes (Hospitalization)
  Sender: FDA-Public Use
  Company Number: JP-JNJFOC-20090406272

PATIENT
  Age: 72 Year
  Sex: Female

DRUGS (3)
  1. REMICADE [Suspect]
     Indication: RHEUMATOID ARTHRITIS
     Dosage: 1 INFUSION
     Route: 042
  2. LEFLUNOMIDE [Concomitant]
     Route: 048
  3. PREDNISOLONE [Concomitant]

REACTIONS (1)
  - CYTOMEGALOVIRUS GASTROENTERITIS [None]
